FAERS Safety Report 6992055-5 (Version None)
Quarter: 2010Q3

REPORT INFORMATION
  Report Type: 
  Country: None (occurrence: None)
  Receive Date: 20100917
  Receipt Date: 20100913
  Transmission Date: 20110219
  Serious: Yes (Death, Other)
  Sender: FDA-Public Use
  Company Number: JP-CELGENEUS-087-21880-10083087

PATIENT
  Sex: Male

DRUGS (3)
  1. REVLIMID [Suspect]
     Indication: MULTIPLE MYELOMA
     Route: 048
     Dates: start: 20100820, end: 20100826
  2. REVLIMID [Suspect]
     Route: 048
     Dates: start: 20100908, end: 20100911
  3. LENADEX [Suspect]
     Indication: MULTIPLE MYELOMA
     Route: 048
     Dates: start: 20100820, end: 20100823

REACTIONS (3)
  - INTERSTITIAL LUNG DISEASE [None]
  - NEUTROPENIA [None]
  - THROMBOCYTOPENIA [None]
